FAERS Safety Report 9670088 (Version 1)
Quarter: 2013Q4

REPORT INFORMATION
  Report Type: Spontaneous
  Country: US (occurrence: US)
  Receive Date: 20131105
  Receipt Date: 20131105
  Transmission Date: 20140711
  Serious: Yes (Hospitalization)
  Sender: FDA-Public Use
  Company Number: US-B.I. PHARMACEUTICALS,INC./RIDGEFIELD-2013-BI-35004BP

PATIENT
  Age: 86 Year
  Sex: Male

DRUGS (8)
  1. MIRAPEX [Suspect]
     Indication: PARKINSON^S DISEASE
     Dosage: 0.75 MG
     Route: 048
     Dates: start: 201309, end: 20131017
  2. TAPAZOLE [Concomitant]
     Route: 048
  3. TIMOLOL MALEATE EYE DROPS [Concomitant]
     Indication: GLAUCOMA
  4. NEPTAZANE [Concomitant]
     Route: 048
  5. PROTONIX [Concomitant]
     Indication: ABDOMINAL DISCOMFORT
     Route: 048
  6. NORVASC [Concomitant]
     Route: 048
  7. LEXAPRO [Concomitant]
     Indication: ANXIETY
     Dosage: 5 MG
     Route: 048
  8. ZOCOR [Concomitant]
     Route: 048

REACTIONS (7)
  - Somnolence [Recovered/Resolved]
  - Dyspnoea [Recovered/Resolved]
  - Feeling hot [Recovered/Resolved]
  - Feeling hot [Recovered/Resolved]
  - Palpitations [Recovered/Resolved]
  - Dyskinesia [Not Recovered/Not Resolved]
  - Pain in extremity [Not Recovered/Not Resolved]
